FAERS Safety Report 5502575-8 (Version None)
Quarter: 2007Q4

REPORT INFORMATION
  Report Type: 
  Country: None (occurrence: None)
  Receive Date: 20071031
  Receipt Date: 20071026
  Transmission Date: 20080405
  Serious: Yes (Death, Hospitalization)
  Sender: FDA-Public Use
  Company Number: PHBS2007JP17409

PATIENT
  Age: 69 Year
  Sex: Male

DRUGS (3)
  1. ZOMETA [Suspect]
     Route: 042
  2. CALCITONIN-SALMON [Concomitant]
  3. TS 1 [Concomitant]

REACTIONS (3)
  - PLEURAL EFFUSION [None]
  - RENAL DISORDER [None]
  - RESPIRATORY FAILURE [None]
